FAERS Safety Report 8911050 (Version 1)
Quarter: 2012Q4

REPORT INFORMATION
  Report Type: Spontaneous
  Country: US (occurrence: None)
  Receive Date: 20121114
  Receipt Date: 20121114
  Transmission Date: 20130627
  Serious: No
  Sender: FDA-Public Use
  Company Number: None

PATIENT
  Age: 77 Year
  Sex: Female
  Weight: 64.1 kg

DRUGS (1)
  1. DICLOFENAC [Suspect]
     Dates: start: 20110616, end: 20110721

REACTIONS (17)
  - Self-medication [None]
  - Asthenia [None]
  - Lethargy [None]
  - Drug-induced liver injury [None]
  - Renal disorder [None]
  - Nausea [None]
  - Vomiting [None]
  - Jaundice [None]
  - Alanine aminotransferase increased [None]
  - Aspartate aminotransferase increased [None]
  - Blood alkaline phosphatase increased [None]
  - Pancreatic duct dilatation [None]
  - Hepatic steatosis [None]
  - Decreased appetite [None]
  - Hypophagia [None]
  - Dehydration [None]
  - Laboratory test abnormal [None]
